FAERS Safety Report 21474366 (Version 2)
Quarter: 2022Q4

REPORT INFORMATION
  Report Type: Spontaneous
  Country: CA (occurrence: CA)
  Receive Date: 20221018
  Receipt Date: 20221118
  Transmission Date: 20230112
  Serious: Yes (Other)
  Sender: FDA-Public Use
  Company Number: CA-PFIZER INC-2020050445

PATIENT
  Age: 10 Year
  Sex: Female

DRUGS (5)
  1. SOMATROPIN [Suspect]
     Active Substance: SOMATROPIN
     Indication: Turner^s syndrome
     Dosage: 0.8 MG, DAILY
     Route: 058
     Dates: start: 20180725
  2. SOMATROPIN [Suspect]
     Active Substance: SOMATROPIN
     Dosage: 0.75 MG, DAILY
     Route: 058
     Dates: end: 2020
  3. SOMATROPIN [Suspect]
     Active Substance: SOMATROPIN
     Dosage: 0.6 MG, DAILY
     Route: 058
     Dates: start: 2020, end: 20210106
  4. SOMATROPIN [Suspect]
     Active Substance: SOMATROPIN
     Dosage: 0.7 MG, DAILY
     Route: 058
     Dates: start: 20210107
  5. SOMATROPIN [Suspect]
     Active Substance: SOMATROPIN
     Dosage: 1650 UG, 1X/DAY
     Route: 058

REACTIONS (7)
  - Aortic valve disease [Not Recovered/Not Resolved]
  - Injection site haemorrhage [Unknown]
  - Blood pressure increased [Not Recovered/Not Resolved]
  - Injection site mass [Unknown]
  - Injection site pain [Unknown]
  - Throat tightness [Unknown]
  - Electric shock sensation [Unknown]
